FAERS Safety Report 6335850-8 (Version None)
Quarter: 2009Q3

REPORT INFORMATION
  Report Type: 
  Country: None (occurrence: None)
  Receive Date: 20090828
  Receipt Date: 20090818
  Transmission Date: 20100115
  Serious: Yes (Hospitalization)
  Sender: FDA-Public Use
  Company Number: 2008-04066

PATIENT
  Age: 71 Year
  Sex: Male

DRUGS (6)
  1. VELCADE [Suspect]
     Indication: DRUG USE FOR UNKNOWN INDICATION
     Dosage: 2.7 MG, INTRAVENOUS
     Route: 042
     Dates: start: 20070424, end: 20070706
  2. ZOCOR [Suspect]
     Indication: HYPOTENSION
     Dosage: 20 MG, ORAL
     Route: 048
  3. SIMVASTATIN [Concomitant]
  4. SELOKEEN (METOPROLOL TARTRATE) [Concomitant]
  5. THYRAX (LEVOTHYROXINE) [Concomitant]
  6. PARACETAMOL          (PARACETAMOL) [Concomitant]

REACTIONS (6)
  - DEAFNESS TRANSITORY [None]
  - GASTRIC DISORDER [None]
  - OTITIS MEDIA [None]
  - PHARYNGITIS [None]
  - RASH [None]
  - SINUSITIS [None]
